FAERS Safety Report 11232532 (Version 2)
Quarter: 2015Q3

REPORT INFORMATION
  Report Type: Spontaneous
  Country: GB (occurrence: GB)
  Receive Date: 20150701
  Receipt Date: 20150702
  Transmission Date: 20151125
  Serious: Yes (Disabling, Other)
  Sender: FDA-Public Use
  Company Number: GB-GLAXOSMITHKLINE-GB2015086896

PATIENT
  Age: 18 Year
  Sex: Male
  Weight: 92 kg

DRUGS (2)
  1. ZANTAC [Suspect]
     Active Substance: RANITIDINE HYDROCHLORIDE
     Indication: DYSPEPSIA
     Route: 048
     Dates: start: 20150606, end: 20150607
  2. OMEPRAZOLE. [Concomitant]
     Active Substance: OMEPRAZOLE
     Indication: DYSPEPSIA
     Dosage: 10 MG, QD
     Route: 048

REACTIONS (7)
  - Alcohol intolerance [Recovered/Resolved]
  - Cognitive disorder [Recovered/Resolved]
  - Motor dysfunction [Recovered/Resolved]
  - Anterograde amnesia [Unknown]
  - Loss of consciousness [Recovered/Resolved]
  - Alcohol interaction [Unknown]
  - Intentional product use issue [Unknown]

NARRATIVE: CASE EVENT DATE: 20150606
